FAERS Safety Report 4420878-5 (Version None)
Quarter: 2004Q3

REPORT INFORMATION
  Report Type: 
  Country: None (occurrence: None)
  Receive Date: 20040804
  Receipt Date: 20040726
  Transmission Date: 20050211
  Serious: Yes (Other)
  Sender: FDA-Public Use
  Company Number: 2004212544GB

PATIENT
  Age: 21 Year
  Sex: Female
  Weight: 85 kg

DRUGS (2)
  1. NICORETTE [Suspect]
     Indication: SMOKING CESSATION THERAPY
     Dosage: 15 MG, QD, TRANSDERMAL
     Route: 062
     Dates: start: 20040506, end: 20040506
  2. ^VENIAFAXINE^ ( ) [Suspect]
     Indication: DEPRESSION
     Dosage: 75 MG, TID, ORAL
     Route: 048
     Dates: start: 20010101

REACTIONS (8)
  - CIRCULATORY COLLAPSE [None]
  - CONFUSIONAL STATE [None]
  - DISORIENTATION [None]
  - DIZZINESS [None]
  - DYSPNOEA [None]
  - FEELING ABNORMAL [None]
  - GASTROENTERITIS VIRAL [None]
  - HYPOAESTHESIA [None]
